FAERS Safety Report 7244947-X (Version None)
Quarter: 2011Q1

REPORT INFORMATION
  Report Type: 
  Country: None (occurrence: None)
  Receive Date: 20110126
  Receipt Date: 20110117
  Transmission Date: 20110831
  Serious: Yes (Other)
  Sender: FDA-Public Use
  Company Number: US-BAYER-2011-007843

PATIENT
  Sex: Female

DRUGS (1)
  1. YASMIN [Suspect]
     Indication: PRODUCT USED FOR UNKNOWN INDICATION
     Dosage: UNK
     Dates: start: 20070301, end: 20070901

REACTIONS (6)
  - DEPRESSION [None]
  - CHOLECYSTECTOMY [None]
  - NERVOUSNESS [None]
  - EMOTIONAL DISTRESS [None]
  - FEAR [None]
  - PAIN [None]
